FAERS Safety Report 6355554-5 (Version None)
Quarter: 2009Q3

REPORT INFORMATION
  Report Type: 
  Country: None (occurrence: None)
  Receive Date: 20090910
  Receipt Date: 20090825
  Transmission Date: 20100115
  Serious: Yes (Other)
  Sender: FDA-Public Use
  Company Number: 2009AL001964

PATIENT
  Age: 68 Year
  Sex: Male

DRUGS (20)
  1. DIGOXIN [Suspect]
     Dosage: 0.25MG, DAILY, PO
     Route: 048
     Dates: start: 20060401
  2. DIGOXIN [Suspect]
     Dosage: 0.125MG M-F, PO
     Route: 048
     Dates: start: 20080101
  3. COREG [Concomitant]
  4. KEFLEX [Concomitant]
  5. LASIX [Concomitant]
  6. HYDRALAZINE HCL [Concomitant]
  7. PROSCAR [Concomitant]
  8. K-DUR [Concomitant]
  9. LACTOBACILLUS [Concomitant]
  10. GLUCOTROL [Concomitant]
  11. EPOGEN [Concomitant]
  12. ASPIRIN [Concomitant]
  13. GLUCOPHAGE [Concomitant]
  14. LIPITOR [Concomitant]
  15. POTASSIUM CHLORIDE [Concomitant]
  16. ALTACE [Concomitant]
  17. BENICAR [Concomitant]
  18. NIFEDICAL [Concomitant]
  19. SYNTHROID [Concomitant]
  20. CEPHALEXIN [Concomitant]

REACTIONS (6)
  - CARDIAC FAILURE [None]
  - ECONOMIC PROBLEM [None]
  - EMOTIONAL DISTRESS [None]
  - INJURY [None]
  - ISCHAEMIC CARDIOMYOPATHY [None]
  - SLEEP APNOEA SYNDROME [None]
